FAERS Safety Report 7570459-X (Version None)
Quarter: 2011Q2

REPORT INFORMATION
  Report Type: 
  Country: None (occurrence: None)
  Receive Date: 20110624
  Receipt Date: 20110303
  Transmission Date: 20111010
  Serious: No
  Sender: FDA-Public Use
  Company Number: US-ALLERGAN-1103071US

PATIENT
  Age: 78 Year
  Sex: Female

DRUGS (1)
  1. LATISSE [Suspect]
     Indication: HYPOTRICHOSIS
     Dosage: UNK

REACTIONS (3)
  - HEADACHE [None]
  - EYELID SENSORY DISORDER [None]
  - OCULAR HYPERAEMIA [None]
